FAERS Safety Report 4981665-2 (Version None)
Quarter: 2006Q2

REPORT INFORMATION
  Report Type: 
  Country: None (occurrence: None)
  Receive Date: 20060425
  Receipt Date: 20060203
  Transmission Date: 20061013
  Serious: No
  Sender: FDA-Public Use
  Company Number: US-GLAXOSMITHKLINE-A0592278A

PATIENT
  Age: 45 Year
  Sex: Male

DRUGS (6)
  1. LEXIVA [Suspect]
     Indication: HIV INFECTION
     Dosage: 700MG TWICE PER DAY
     Route: 048
     Dates: start: 20040101
  2. NORVIR [Concomitant]
     Dosage: 100MG TWICE PER DAY
  3. ATROVENT [Concomitant]
  4. EPIVIR [Concomitant]
     Dosage: 300MG PER DAY
  5. VIREAD [Concomitant]
     Dosage: 300MG PER DAY
  6. TEGRETOL [Concomitant]
     Dosage: 200MG FOUR TIMES PER DAY

REACTIONS (1)
  - ANTICONVULSANT DRUG LEVEL ABOVE THERAPEUTIC [None]
